FAERS Safety Report 12492218 (Version 1)
Quarter: 2016Q2

REPORT INFORMATION
  Report Type: Spontaneous
  Country: US (occurrence: US)
  Receive Date: 20160623
  Receipt Date: 20160623
  Transmission Date: 20160815
  Serious: No
  Sender: FDA-Public Use
  Company Number: US-B.I. PHARMACEUTICALS,INC./RIDGEFIELD-2016-BI-39881TI

PATIENT
  Sex: Female
  Weight: 77.11 kg

DRUGS (2)
  1. AGGRENOX [Suspect]
     Active Substance: ASPIRIN\DIPYRIDAMOLE
     Indication: ANTICOAGULANT THERAPY
     Dosage: DOSE PER APPLICATION, DAILY DOSE 25/200MG
     Route: 048
     Dates: start: 201604
  2. AGGRENOX [Suspect]
     Active Substance: ASPIRIN\DIPYRIDAMOLE
     Dosage: DOSE PER APPLICATION, DAILY DOSE 25/200MG
     Route: 048
     Dates: start: 201601

REACTIONS (1)
  - Alopecia [Unknown]
